FAERS Safety Report 8830563 (Version 1)
Quarter: 2012Q4

REPORT INFORMATION
  Report Type: Spontaneous
  Country: GB (occurrence: None)
  Receive Date: 20121004
  Receipt Date: 20121004
  Transmission Date: 20130627
  Serious: Yes (Other)
  Sender: FDA-Public Use
  Company Number: AUR-APL-2012-04234

PATIENT
  Age: 60 Year
  Sex: Female

DRUGS (2)
  1. LOSARTAN [Suspect]
     Indication: HYPERTENSION
     Route: 048
  2. BENDROFLUAZIDE [Suspect]
     Indication: HYPERTENSION
     Dosage: 2.5 mg (2.5 mg, 1 in 1 D), Unknown
     Route: 048

REACTIONS (3)
  - Arthralgia [None]
  - Joint stiffness [None]
  - Mobility decreased [None]
